FAERS Safety Report 5733919-X (Version None)
Quarter: 2008Q2

REPORT INFORMATION
  Report Type: 
  Country: None (occurrence: None)
  Receive Date: 20080509
  Receipt Date: 20080418
  Transmission Date: 20081010
  Serious: No
  Sender: FDA-Public Use
  Company Number: US-BOEHRINGER INGELHEIM GMBH, GERMANY-2008-BP-06175BP

PATIENT
  Age: 38 Year
  Sex: Female

DRUGS (1)
  1. ZANTAC 75 [Suspect]
     Indication: HYPERCHLORHYDRIA
     Route: 048
     Dates: start: 20080401

REACTIONS (1)
  - DRUG INEFFECTIVE [None]
